FAERS Safety Report 21087120 (Version 2)
Quarter: 2022Q3

REPORT INFORMATION
  Report Type: Spontaneous
  Country: PT (occurrence: PT)
  Receive Date: 20220715
  Receipt Date: 20220915
  Transmission Date: 20221027
  Serious: Yes (Other)
  Sender: FDA-Public Use
  Company Number: PT-NOVARTISPH-NVSC2022PT157154

PATIENT
  Weight: 2.335 kg

DRUGS (26)
  1. AMOXICILLIN [Suspect]
     Active Substance: AMOXICILLIN
     Indication: Foetal exposure during pregnancy
     Dosage: MATERNAL EXPOSURE DURING PREGNANCY: DOSE OF 3-4 G/DAY FOR 21 DAYS
     Route: 064
  2. AMOXICILLIN [Suspect]
     Active Substance: AMOXICILLIN
     Dosage: MATERNAL EXPOSURE DURING PREGNANCY: 500 MG DAILY, UNTIL DELIVERY
     Route: 064
  3. DEXTROSE [Suspect]
     Active Substance: DEXTROSE
     Indication: Foetal exposure during pregnancy
     Dosage: MATERNAL EXPOSURE DURING PREGNANCY: 1500 ML PER EXCHANGE (4 EXCHANGES) AT WEEK 8
     Route: 064
  4. DEXTROSE [Suspect]
     Active Substance: DEXTROSE
     Dosage: MATERNAL EXPOSURE DURING PREGNANCY: 1800 ML PER EXCHANGE (5 EXCHANGES) AT WEEK 10
     Route: 064
  5. DEXTROSE [Suspect]
     Active Substance: DEXTROSE
     Dosage: MATERNAL EXPOSURE DURING PREGNANCY: 1900 ML PER EXCHANGE (4 EXCHANGES) AT WEEK 11
     Route: 064
  6. DEXTROSE [Suspect]
     Active Substance: DEXTROSE
     Dosage: MATERNAL EXPOSURE DURING PREGNANCY: 1900 ML PER EXCHANGE (4 EXCHANGES) AT WEEK 15
     Route: 064
  7. DEXTROSE [Suspect]
     Active Substance: DEXTROSE
     Dosage: MATERNAL EXPOSURE DURING PREGNANCY: 1800 ML PER EXCHANGE (4 EXCHANGES) AT WEEK 20
     Route: 064
  8. DEXTROSE [Suspect]
     Active Substance: DEXTROSE
     Dosage: MATERNAL EXPOSURE DURING PREGNANCY: 1500 ML PER EXCHANGE (2 EXCHANGES) AT WEEK 20
     Route: 064
  9. DEXTROSE [Suspect]
     Active Substance: DEXTROSE
     Dosage: MATERNAL EXPOSURE DURING PREGNANCY: 1700 ML PER EXCHANGE (6 EXCHANGES) AT WEEK 21
     Route: 064
  10. DEXTROSE [Suspect]
     Active Substance: DEXTROSE
     Dosage: MATERNAL EXPOSURE DURING PREGNANCY: 1700 ML PER EXCHANGE (7 EXCHANGES) AT WEEK 22
     Route: 064
  11. DEXTROSE [Suspect]
     Active Substance: DEXTROSE
     Dosage: MATERNAL EXPOSURE DURING PREGNANCY: 1700 ML PER EXCHANGE (7 EXCHANGES) AT WEEK 24
     Route: 064
  12. DEXTROSE [Suspect]
     Active Substance: DEXTROSE
     Dosage: MATERNAL EXPOSURE DURING PREGNANCY: 1700 ML PER EXCHANGE (4 EXCHANGES) AT WEEK 25
     Route: 064
  13. ICODEXTRIN [Suspect]
     Active Substance: ICODEXTRIN
     Indication: Foetal exposure during pregnancy
     Dosage: MATERNAL EXPOSURE DURING PREGNANCY: 1500 ML PER EXCHANGE (4 EXCHANGES) AT WEEK 8
     Route: 064
  14. ICODEXTRIN [Suspect]
     Active Substance: ICODEXTRIN
     Dosage: MATERNAL EXPOSURE DURING PREGNANCY: 1800 ML PER EXCHANGE (5 EXCHANGES) AT WEEK 10
     Route: 064
  15. ICODEXTRIN [Suspect]
     Active Substance: ICODEXTRIN
     Dosage: MATERNAL EXPOSURE DURING PREGNANCY: 1300 ML DURING THE DAY AT WEEK 11
     Route: 064
  16. ICODEXTRIN [Suspect]
     Active Substance: ICODEXTRIN
     Dosage: MATERNAL EXPOSURE DURING PREGNANCY: 1300 ML DURING THE DAY AT WEEK 15
     Route: 064
  17. ICODEXTRIN [Suspect]
     Active Substance: ICODEXTRIN
     Dosage: MATERNAL EXPOSURE DURING PREGNANCY: 1300 ML DURING THE DAY AT WEEK 20
     Route: 064
  18. HEPARIN [Suspect]
     Active Substance: HEPARIN SODIUM
     Indication: Foetal exposure during pregnancy
     Dosage: MATERNAL EXPOSURE DURING PREGNANCY: MINIMAL DOSE
     Route: 064
  19. ASPIRIN [Suspect]
     Active Substance: ASPIRIN
     Indication: Foetal exposure during pregnancy
     Dosage: MATERNAL EXPOSURE DURING PREGNANCY: 150 MG DAILY
     Route: 064
  20. LEVOTHYROXINE [Suspect]
     Active Substance: LEVOTHYROXINE
     Indication: Foetal exposure during pregnancy
     Dosage: MATERNAL EXPOSURE DURING PREGNANCY: UNKNOWN
     Route: 064
  21. DARBEPOETIN ALFA [Suspect]
     Active Substance: DARBEPOETIN ALFA
     Indication: Foetal exposure during pregnancy
     Dosage: MATERNAL EXPOSURE DURING PREGNANCY: MAXIMUM DOSE OF 80 UG/WEEK
     Route: 064
  22. IRON [Suspect]
     Active Substance: IRON
     Indication: Foetal exposure during pregnancy
     Dosage: MATERNAL EXPOSURE DURING PREGNANCY: UNKNOWN
     Route: 064
  23. VITAMIN B [Suspect]
     Active Substance: VITAMIN B
     Indication: Foetal exposure during pregnancy
     Dosage: UNK
     Route: 064
  24. FOLIC ACID [Suspect]
     Active Substance: FOLIC ACID
     Indication: Foetal exposure during pregnancy
     Dosage: MATERNAL EXPOSURE DURING PREGNANCY: UNKNOWN
     Route: 064
  25. PHOSPHORUS [Suspect]
     Active Substance: PHOSPHORUS
     Indication: Foetal exposure during pregnancy
     Dosage: UNK
     Route: 064
  26. NIFEDIPINE [Suspect]
     Active Substance: NIFEDIPINE
     Indication: Foetal exposure during pregnancy
     Dosage: MATERNAL EXPOSURE DURING PREGNANCY: MAXIMUM DOSE OF 60 MG/DAY
     Route: 064

REACTIONS (3)
  - Low birth weight baby [Unknown]
  - Premature baby [Unknown]
  - Foetal exposure during pregnancy [Unknown]
